FAERS Safety Report 25208086 (Version 1)
Quarter: 2025Q2

REPORT INFORMATION
  Report Type: Spontaneous
  Country: US (occurrence: None)
  Receive Date: 20250416
  Receipt Date: 20250416
  Transmission Date: 20250717
  Serious: Yes (Other)
  Sender: FDA-CTU
  Company Number: None

PATIENT
  Age: 42 Year
  Sex: Female
  Weight: 137.25 kg

DRUGS (4)
  1. DAYQUIL VAPOCOOL SEVERE COLD AND FLU PLUS CONGESTION [Suspect]
     Active Substance: ACETAMINOPHEN\DEXTROMETHORPHAN HYDROBROMIDE\GUAIFENESIN\PHENYLEPHRINE HYDROCHLORIDE
     Indication: Nasopharyngitis
     Dosage: 2 TATLESPOON(S) EVRY 4 HOURS ORAL
     Route: 048
     Dates: start: 20250220, end: 20250220
  2. DAYQUIL VAPOCOOL SEVERE COLD AND FLU PLUS CONGESTION [Suspect]
     Active Substance: ACETAMINOPHEN\DEXTROMETHORPHAN HYDROBROMIDE\GUAIFENESIN\PHENYLEPHRINE HYDROCHLORIDE
     Indication: Influenza
  3. Famotodine [Concomitant]
  4. OMEPRAZOLE [Concomitant]
     Active Substance: OMEPRAZOLE

REACTIONS (6)
  - Headache [None]
  - Heart rate increased [None]
  - Feeling of body temperature change [None]
  - Anxiety [None]
  - Migraine [None]
  - Visual impairment [None]

NARRATIVE: CASE EVENT DATE: 20250220
